FAERS Safety Report 23378515 (Version 1)
Quarter: 2024Q1

REPORT INFORMATION
  Report Type: Spontaneous
  Country: US (occurrence: US)
  Receive Date: 20240108
  Receipt Date: 20240108
  Transmission Date: 20240410
  Serious: Yes (Other)
  Sender: FDA-Public Use
  Company Number: US-ELI_LILLY_AND_COMPANY-US202312016025

PATIENT
  Age: 67 Year
  Sex: Female

DRUGS (1)
  1. INSULIN LISPRO [Suspect]
     Active Substance: INSULIN LISPRO
     Indication: Blood glucose increased
     Dosage: UNK UNK, UNKNOWN
     Route: 065
     Dates: start: 20220112, end: 20220124

REACTIONS (11)
  - Paralysis [Unknown]
  - Anaphylactic reaction [Unknown]
  - Mobility decreased [Unknown]
  - Impaired gastric emptying [Unknown]
  - Stress [Unknown]
  - Abdominal pain upper [Unknown]
  - Nausea [Unknown]
  - Nerve injury [Unknown]
  - Abdominal discomfort [Unknown]
  - Incorrect product administration duration [Unknown]
  - Peripheral swelling [Unknown]

NARRATIVE: CASE EVENT DATE: 20220201
